FAERS Safety Report 9606359 (Version 2)
Quarter: 2013Q4

REPORT INFORMATION
  Report Type: Spontaneous
  Country: US (occurrence: US)
  Receive Date: 20131008
  Receipt Date: 20131008
  Transmission Date: 20140711
  Serious: No
  Sender: FDA-Public Use
  Company Number: US-AMGEN-USASP2013045754

PATIENT
  Age: 78 Year
  Sex: Female
  Weight: 52.61 kg

DRUGS (6)
  1. PROLIA [Suspect]
     Indication: OSTEOPOROSIS POSTMENOPAUSAL
     Dosage: 60 MUG, Q6MO
     Route: 058
     Dates: start: 20130422
  2. MINERALS NOS [Concomitant]
  3. VITAMINS                           /00067501/ [Concomitant]
  4. MAGENSIUM VITAFIT [Concomitant]
  5. CALCIUM [Concomitant]
  6. VITAMIN D                          /00107901/ [Concomitant]

REACTIONS (3)
  - Arthralgia [Unknown]
  - Arthropod bite [Unknown]
  - Abdominal discomfort [Recovering/Resolving]
